FAERS Safety Report 8098227-3 (Version None)
Quarter: 2012Q1

REPORT INFORMATION
  Report Type: 
  Country: None (occurrence: None)
  Receive Date: 20120128
  Receipt Date: 20110807
  Transmission Date: 20120608
  Serious: No
  Sender: FDA-Public Use
  Company Number: US-ABBOTT-11P-163-0844559-00

PATIENT
  Age: 49 Year
  Sex: Male

DRUGS (9)
  1. FEXOFENADINE [Concomitant]
     Indication: HYPERSENSITIVITY
  2. DICYCLOMINE [Concomitant]
     Indication: MUSCLE SPASMS
     Dosage: 2-4 TABLETS DAILY
  3. LORAZEPAM [Concomitant]
     Indication: ANXIETY
  4. NEXIUM [Concomitant]
     Indication: PHARYNGEAL ULCERATION
  5. MORPHINE SULFATE [Concomitant]
     Indication: PAIN
     Dosage: DAILY
  6. HUMIRA [Suspect]
     Indication: CROHN'S DISEASE
     Dates: start: 20110620
  7. HYDROCODONE BITARTRATE [Concomitant]
     Indication: PAIN
     Dosage: 1-2 TABLETS DAILY
  8. MORPHINE [Concomitant]
     Indication: PAIN
  9. DOVONEX [Concomitant]
     Indication: PSORIASIS

REACTIONS (6)
  - HEADACHE [None]
  - NERVOUSNESS [None]
  - COLD SWEAT [None]
  - DRUG INEFFECTIVE [None]
  - MIGRAINE [None]
  - RASH [None]
